FAERS Safety Report 7800044-3 (Version None)
Quarter: 2011Q4

REPORT INFORMATION
  Report Type: 
  Country: None (occurrence: None)
  Receive Date: 20111006
  Receipt Date: 20110928
  Transmission Date: 20120403
  Serious: Yes (Death, Hospitalization)
  Sender: FDA-Public Use
  Company Number: US-BAXTER-2011BH030091

PATIENT
  Sex: Male

DRUGS (6)
  1. DIANEAL [Suspect]
     Route: 033
     Dates: start: 20101201, end: 20110101
  2. DIANEAL [Suspect]
     Indication: PERITONEAL DIALYSIS
     Route: 033
     Dates: start: 20101201, end: 20110101
  3. DIANEAL [Suspect]
     Route: 033
     Dates: start: 20110101
  4. DIANEAL [Suspect]
     Route: 033
     Dates: start: 20101201, end: 20110101
  5. DIANEAL [Suspect]
     Indication: PERITONEAL DIALYSIS
     Route: 033
     Dates: start: 20110101
  6. DIANEAL [Suspect]
     Route: 033
     Dates: start: 20110101

REACTIONS (4)
  - NAUSEA [None]
  - ABDOMINAL PAIN UPPER [None]
  - ASTHENIA [None]
  - CARDIAC DISORDER [None]
